FAERS Safety Report 7307402-4 (Version None)
Quarter: 2011Q1

REPORT INFORMATION
  Report Type: 
  Country: None (occurrence: None)
  Receive Date: 20110223
  Receipt Date: 20110217
  Transmission Date: 20110831
  Serious: Yes (Death, Hospitalization, Other)
  Sender: FDA-Public Use
  Company Number: PHHY2011CA12581

PATIENT
  Sex: Male

DRUGS (3)
  1. ABILIFY [Concomitant]
  2. ZYPREXA [Concomitant]
  3. CLOZARIL [Suspect]
     Dosage: UNK
     Dates: start: 20100531

REACTIONS (3)
  - MENTAL DISORDER [None]
  - BLOOD CREATINE PHOSPHOKINASE INCREASED [None]
  - DEATH [None]
